FAERS Safety Report 9855763 (Version 4)
Quarter: 2014Q1

REPORT INFORMATION
  Report Type: Spontaneous
  Country: US (occurrence: US)
  Receive Date: 20140130
  Receipt Date: 20140304
  Transmission Date: 20141002
  Serious: Yes (Death, Hospitalization)
  Sender: FDA-Public Use
  Company Number: PHHY2013US148226

PATIENT
  Sex: Male
  Weight: 97.96 kg

DRUGS (7)
  1. JAKAFI [Suspect]
     Indication: MYELOFIBROSIS
     Dosage: 15 MG, BID
     Route: 048
     Dates: start: 20120201
  2. EXJADE [Suspect]
     Indication: MYELOFIBROSIS
     Dosage: 10 MG, BID
     Route: 048
     Dates: start: 20110125, end: 20131110
  3. FUROSEMIDE [Concomitant]
     Dosage: UNK UKN, UNK
  4. SENNA PLUS                         /00936101/ [Concomitant]
     Dosage: UNK UKN, UNK
  5. SPIRONOLACTONE [Concomitant]
     Dosage: UNK UKN, UNK
  6. HYDROCODONE/APAP [Concomitant]
     Dosage: UNK UKN, UNK
  7. CYCLOBENZAPRINE [Concomitant]
     Dosage: UNK UKN, UNK

REACTIONS (12)
  - Renal failure [Fatal]
  - Sepsis [Fatal]
  - Cardiogenic shock [Fatal]
  - Myelofibrosis [Fatal]
  - Ventricular tachycardia [Unknown]
  - Dehydration [Unknown]
  - Asthenia [Unknown]
  - Iron overload [Unknown]
  - Fatigue [Unknown]
  - Haemoglobin decreased [Unknown]
  - Platelet count decreased [Unknown]
  - Abdominal pain [Unknown]
